FAERS Safety Report 4938721-4 (Version None)
Quarter: 2006Q1

REPORT INFORMATION
  Report Type: 
  Country: None (occurrence: None)
  Receive Date: 20060306
  Receipt Date: 20060224
  Transmission Date: 20060701
  Serious: Yes (Other)
  Sender: FDA-Public Use
  Company Number: 2006028550

PATIENT
  Age: 37 Year
  Sex: Female
  Weight: 53.978 kg

DRUGS (5)
  1. LYRICA [Suspect]
     Indication: NEUROPATHY PERIPHERAL
     Dosage: (3 IN 1 D), ORAL
     Route: 048
     Dates: start: 20060216, end: 20060224
  2. SEROQUEL (QUETIAPNE FUMARATE) [Concomitant]
  3. EFFEXOR [Concomitant]
  4. TEGRETOL [Concomitant]
  5. DITROPAN [Concomitant]

REACTIONS (5)
  - COORDINATION ABNORMAL [None]
  - FALL [None]
  - MUSCLE TWITCHING [None]
  - PARAESTHESIA [None]
  - SENSORY LOSS [None]
